FAERS Safety Report 9962820 (Version 1)
Quarter: 2014Q1

REPORT INFORMATION
  Report Type: Report from Study
  Country: US (occurrence: US)
  Receive Date: 20140305
  Receipt Date: 20140305
  Transmission Date: 20141002
  Serious: No
  Sender: FDA-Public Use
  Company Number: US-ABBVIE-13P-163-1112259-00

PATIENT
  Age: 44 Year
  Sex: Male

DRUGS (7)
  1. HUMIRA [Suspect]
     Indication: CROHN^S DISEASE
     Dates: start: 20130528, end: 20130528
  2. HUMIRA [Suspect]
     Dates: start: 20130611, end: 20130611
  3. HUMIRA [Suspect]
     Dates: start: 20130625
  4. ASACOL [Concomitant]
     Indication: CROHN^S DISEASE
  5. IMODIUM [Concomitant]
     Indication: FREQUENT BOWEL MOVEMENTS
     Dosage: ONCE OR TWICE DAILY
  6. MULTIVITAMIN [Concomitant]
     Indication: PRODUCT USED FOR UNKNOWN INDICATION
     Dosage: DAILY
  7. PREVIDENT [Concomitant]
     Indication: DENTAL CARIES

REACTIONS (2)
  - Dental caries [Not Recovered/Not Resolved]
  - Injection site erythema [Not Recovered/Not Resolved]
